FAERS Safety Report 11073249 (Version 1)
Quarter: 2015Q2

REPORT INFORMATION
  Report Type: Spontaneous
  Country: US (occurrence: US)
  Receive Date: 20150428
  Receipt Date: 20150428
  Transmission Date: 20150821
  Serious: No
  Sender: FDA-Public Use
  Company Number: US-GLAXOSMITHKLINE-US2015GSK057520

PATIENT
  Age: 45 Year
  Sex: Female

DRUGS (1)
  1. TANZEUM [Suspect]
     Active Substance: ALBIGLUTIDE
     Indication: TYPE 1 DIABETES MELLITUS
     Dosage: 30 MG, WE
     Route: 042
     Dates: start: 20150423

REACTIONS (6)
  - Blood glucose increased [Unknown]
  - Device use error [Unknown]
  - Rash generalised [Unknown]
  - Blood glucose decreased [Unknown]
  - Product use issue [Unknown]
  - Incorrect dose administered [Unknown]

NARRATIVE: CASE EVENT DATE: 20150423
